FAERS Safety Report 8790123 (Version 3)
Quarter: 2012Q4

REPORT INFORMATION
  Report Type: 
  Country: JP (occurrence: JP)
  Receive Date: 20120914
  Receipt Date: 20121127
  Transmission Date: 20130627
  Serious: Yes (Hospitalization)
  Sender: FDA-Public Use
  Company Number: JP-ASTELLAS-2012JP005410

PATIENT
  Age: 80 Year
  Sex: Female
  Weight: 34.6 kg

DRUGS (12)
  1. BETANIS [Suspect]
     Indication: HYPERTONIC BLADDER
     Dosage: 25 mg, UID/QD
     Route: 048
     Dates: start: 20120427, end: 20120611
  2. ATELEC [Concomitant]
     Indication: HYPERTENSION
     Dosage: 10 mg, UID/QD
     Route: 048
     Dates: end: 20120510
  3. MICARDIS [Concomitant]
     Indication: HYPERTENSION
     Dosage: 5 mg, UID/QD
     Route: 048
     Dates: end: 20120607
  4. PARIET [Concomitant]
     Indication: GASTROOESOPHAGEAL REFLUX DISEASE
     Dosage: 10 mg, UID/QD
     Route: 048
     Dates: end: 20120607
  5. BAYASPIRIN [Concomitant]
     Indication: ANGINA PECTORIS
     Dosage: 100 mg, UID/QD
     Route: 048
     Dates: end: 20120622
  6. RIMATIL [Concomitant]
     Indication: SCLERODERMA
     Dosage: 200 mg, UID/QD
     Route: 048
     Dates: start: 20120427
  7. ALLELOCK [Concomitant]
     Indication: PRURITUS
     Dosage: 5 mg, bid
     Route: 048
     Dates: start: 20120427
  8. VOLTAREN                           /00372302/ [Concomitant]
     Indication: RHEUMATOID ARTHRITIS
     Dosage: 37.5 mg, bid
     Route: 048
     Dates: start: 20120427
  9. DEPAS [Concomitant]
     Indication: PSYCHOSOMATIC DISEASE
     Dosage: 0.5 mg, bid
     Route: 048
     Dates: start: 20120427, end: 20120628
  10. MAGMITT [Concomitant]
     Indication: CONSTIPATION
     Dosage: 500 mg, bid
     Route: 048
     Dates: start: 20120427, end: 20120607
  11. URSO                               /00465701/ [Concomitant]
     Indication: BILIARY CIRRHOSIS PRIMARY
     Dosage: 200 mg, tid
     Route: 048
     Dates: end: 20120510
  12. JUVELA N [Concomitant]
     Indication: NEUROPATHY PERIPHERAL
     Dosage: 200 mg, tid
     Route: 048
     Dates: end: 20120607

REACTIONS (1)
  - Urinary retention [Recovered/Resolved]
